FAERS Safety Report 8604719-8 (Version None)
Quarter: 2012Q3

REPORT INFORMATION
  Report Type: 
  Country: None (occurrence: None)
  Receive Date: 20120820
  Receipt Date: 20120816
  Transmission Date: 20120928
  Serious: Yes (Life-Threatening)
  Sender: FDA-Public Use
  Company Number: US-JNJFOC-20120808223

PATIENT
  Sex: Female
  Weight: 102.97 kg

DRUGS (2)
  1. XARELTO [Suspect]
     Indication: THROMBOSIS PROPHYLAXIS
     Route: 048
     Dates: start: 20120510, end: 20120522
  2. XARELTO [Suspect]
     Indication: KNEE ARTHROPLASTY
     Route: 048
     Dates: start: 20120510, end: 20120522

REACTIONS (6)
  - RASH ERYTHEMATOUS [None]
  - OEDEMA PERIPHERAL [None]
  - MYALGIA [None]
  - CONTUSION [None]
  - OPEN WOUND [None]
  - URTICARIA [None]
